FAERS Safety Report 4642657-6 (Version None)
Quarter: 2005Q2

REPORT INFORMATION
  Report Type: 
  Country: None (occurrence: None)
  Receive Date: 20050422
  Receipt Date: 20050413
  Transmission Date: 20051028
  Serious: Yes (Life-Threatening, Other)
  Sender: FDA-Public Use
  Company Number: AU-JNJFOC-20041202809

PATIENT
  Sex: Male

DRUGS (5)
  1. RISPERDAL [Suspect]
     Indication: SCHIZOPHRENIA
     Route: 049
  2. RISPERDAL CONSTA [Suspect]
     Route: 030
     Dates: start: 20040927
  3. RISPERDAL CONSTA [Suspect]
     Indication: SCHIZOPHRENIA
     Route: 030
     Dates: start: 20040927
  4. OLANZAPINE [Suspect]
     Indication: SCHIZOPHRENIA
     Dates: start: 20041116
  5. CHLORPROMAZINE [Concomitant]

REACTIONS (1)
  - NEUTROPENIA [None]
